FAERS Safety Report 18998038 (Version 1)
Quarter: 2021Q1

REPORT INFORMATION
  Report Type: Spontaneous
  Country: FR (occurrence: FR)
  Receive Date: 20210311
  Receipt Date: 20210311
  Transmission Date: 20210420
  Serious: Yes (Death, Hospitalization)
  Sender: FDA-Public Use
  Company Number: FR-JNJFOC-20210318241

PATIENT
  Age: 73 Year
  Sex: Male
  Weight: 70 kg

DRUGS (11)
  1. RIVAROXABAN [Suspect]
     Active Substance: RIVAROXABAN
     Indication: ANTICOAGULANT THERAPY
     Dosage: 15 MG, QD
     Route: 048
  2. ZOPICLONE [Concomitant]
     Active Substance: ZOPICLONE
     Dosage: UNK
  3. SIFROL [Concomitant]
     Active Substance: PRAMIPEXOLE
     Dosage: UNK
  4. FUROSEMIDE. [Concomitant]
     Active Substance: FUROSEMIDE
     Dosage: UNK
  5. GALVUS [Concomitant]
     Active Substance: VILDAGLIPTIN
     Dosage: UNK
  6. ALLOPURINOL. [Concomitant]
     Active Substance: ALLOPURINOL
     Dosage: UNK
  7. AMIODARONE [Concomitant]
     Active Substance: AMIODARONE
     Dosage: UNK
  8. DIFFU K [Concomitant]
     Active Substance: POTASSIUM CHLORIDE
     Dosage: UNK
  9. SPIRONOLACTONE. [Concomitant]
     Active Substance: SPIRONOLACTONE
     Dosage: UNK
  10. ACEBUTOLOL [ACEBUTOLOL HYDROCHLORIDE] [Concomitant]
     Active Substance: ACEBUTOLOL HYDROCHLORIDE
     Dosage: UNK
  11. LOXEN [NICARDIPINE HYDROCHLORIDE] [Concomitant]
     Active Substance: NICARDIPINE HYDROCHLORIDE
     Dosage: UNK

REACTIONS (3)
  - Anaemia [Fatal]
  - Condition aggravated [Fatal]
  - Melaena [Fatal]

NARRATIVE: CASE EVENT DATE: 20200502
